FAERS Safety Report 15779114 (Version 15)
Quarter: 2020Q4

REPORT INFORMATION
  Report Type: Spontaneous
  Country: FR (occurrence: FR)
  Receive Date: 20190101
  Receipt Date: 20201105
  Transmission Date: 20210113
  Serious: Yes (Hospitalization, Disabling, Other)
  Sender: FDA-Public Use
  Company Number: FR-ASCEND THERAPEUTICS-2060731

PATIENT
  Age: 28 Year
  Sex: Female

DRUGS (37)
  1. CYPROTERONE ACETATE (CYPROTERONE ACETATE) [Suspect]
     Active Substance: CYPROTERONE ACETATE
     Route: 048
     Dates: start: 20140818, end: 20170510
  2. ESTRADIOL. [Suspect]
     Active Substance: ESTRADIOL
     Route: 048
  3. OROMONE (ESTRADIOL) [Concomitant]
     Active Substance: ESTRADIOL
     Dates: start: 201312
  4. ANDROCUR (CYPROTERONE ACETATE)?INDICATION FOR USE: CONTRACEPTION [Suspect]
     Active Substance: CYPROTERONE ACETATE
     Route: 048
     Dates: start: 20100820, end: 201307
  5. ANDROCUR (CYPROTERONE ACETATE) [Suspect]
     Active Substance: CYPROTERONE ACETATE
     Route: 048
     Dates: start: 20090705, end: 20100820
  6. OROMONE (ESTRADIOL) [Concomitant]
     Active Substance: ESTRADIOL
     Dates: start: 2007
  7. CYPROTERONE ACETATE (CYPROTERONE ACETATE)?INDICATION FOR USE: ACNE [Suspect]
     Active Substance: CYPROTERONE ACETATE
     Route: 048
     Dates: start: 20090705, end: 20100820
  8. ESTRADIOL. [Suspect]
     Active Substance: ESTRADIOL
     Route: 048
     Dates: start: 2008, end: 20170920
  9. CYPROTERONE ACETATE (CYPROTERONE ACETATE) [Suspect]
     Active Substance: CYPROTERONE ACETATE
     Route: 048
     Dates: start: 20110830
  10. CYPROTERONE ACETATE (CYPROTERONE ACTETATE) [Suspect]
     Active Substance: CYPROTERONE ACETATE
     Route: 048
     Dates: end: 20130816
  11. CYPROTERONE ACETATE/ETHINYLESTRADIOL (CYPROTERONE ACETATE)?INDICATION [Suspect]
     Active Substance: CYPROTERONE ACETATE\ETHINYL ESTRADIOL
     Dates: start: 20161124
  12. OROMONE (ESTRADIOL) [Concomitant]
     Active Substance: ESTRADIOL
     Dates: start: 2008, end: 20170920
  13. ANDROCUR (CYPROTERONE ACETATE) [Suspect]
     Active Substance: CYPROTERONE ACETATE
     Route: 048
     Dates: start: 20170510, end: 20170920
  14. CYPROTERONE ACETATE (CYPROTERONE ACETATE)?INDICATION FOR USE: ALOPECIA [Suspect]
     Active Substance: CYPROTERONE ACETATE
     Route: 048
     Dates: start: 20070525, end: 2009
  15. CYPROTERONE ACETATE (CYPROTERONE ACETATE) [Suspect]
     Active Substance: CYPROTERONE ACETATE
     Route: 048
     Dates: start: 20100820
  16. OROMONE (ESTRADIOL)?INDICATION FOR USE: CONTRACEPTION [Concomitant]
     Active Substance: ESTRADIOL
     Dates: start: 2008, end: 20170920
  17. ANDROCUR (CYPROTERONE ACETATE) [Suspect]
     Active Substance: CYPROTERONE ACETATE
     Route: 048
     Dates: start: 20161124
  18. ANDROCUR (CYPROTERONE ACETATE) [Suspect]
     Active Substance: CYPROTERONE ACETATE
     Route: 048
     Dates: start: 20110830
  19. CYPROTERONE ACETATE (CYPROTERONE ACETATE) [Suspect]
     Active Substance: CYPROTERONE ACETATE
     Route: 048
     Dates: start: 20110705, end: 20110830
  20. CYPROTERONE ACETATE [Suspect]
     Active Substance: CYPROTERONE ACETATE
     Route: 048
     Dates: start: 20161124
  21. ANDROCUR (CYPROTERONE ACETATE) [Suspect]
     Active Substance: CYPROTERONE ACETATE
     Route: 048
     Dates: end: 20130816
  22. ANDROCUR (CYPROTERONE ACETATE) [Suspect]
     Active Substance: CYPROTERONE ACETATE
     Route: 048
     Dates: start: 20100715
  23. ESTROGEL [Suspect]
     Active Substance: ESTRADIOL
  24. CYPROTERONE ACETATE (CYPROTERONE ACETATE) [Suspect]
     Active Substance: CYPROTERONE ACETATE
     Route: 048
     Dates: start: 20101221, end: 20110705
  25. CYPROTERONE ACETATE/ETHINYLESTRADIOL (CYPROTERONE ACETATE)?INDICATION [Suspect]
     Active Substance: CYPROTERONE ACETATE\ETHINYL ESTRADIOL
     Dates: start: 1997
  26. CYPROTERONE ACETATE (CYPROTERONE ACETATE)?INDICATION FOR USE: HAIR LOS [Suspect]
     Active Substance: CYPROTERONE ACETATE
     Route: 048
     Dates: start: 2008
  27. ESTRADIOL. [Suspect]
     Active Substance: ESTRADIOL
     Route: 048
     Dates: start: 20090705, end: 20170920
  28. CYPROTERONE ACETATE [Suspect]
     Active Substance: CYPROTERONE ACETATE
     Route: 048
     Dates: start: 20170510, end: 20170920
  29. ESTROGEL [Suspect]
     Active Substance: ESTRADIOL
     Indication: PRODUCT USED FOR UNKNOWN INDICATION
     Dates: start: 20070528, end: 2009
  30. CYPROTERONE ACETATE (CYPROTERONE ACETATE) [Suspect]
     Active Substance: CYPROTERONE ACETATE
     Route: 048
     Dates: start: 20090715
  31. CYPERTERONE ACETATE (CYPROTERONE ACETATE) [Suspect]
     Active Substance: CYPROTERONE ACETATE
     Route: 048
     Dates: start: 20130816, end: 20140818
  32. ANDROCUR (CYPROTERONE ACETATE)?INDICATION FOR USE: ACNE [Suspect]
     Active Substance: CYPROTERONE ACETATE
     Route: 048
     Dates: start: 20110705, end: 20110830
  33. ANDROCUR (CYPROTERONE ACETATE) [Suspect]
     Active Substance: CYPROTERONE ACETATE
     Route: 048
     Dates: start: 20070528, end: 2009
  34. ANDROCUR (CYPROTERONE ACETATE) [Suspect]
     Active Substance: CYPROTERONE ACETATE
     Route: 048
     Dates: start: 20130816, end: 20140818
  35. OROMONE (ESTRADIOL) [Concomitant]
     Active Substance: ESTRADIOL
     Dates: start: 200907
  36. ANDROCUR (CYPROTERONE ACETATE)?INDICATION FOR USE: HAIR LOSS [Suspect]
     Active Substance: CYPROTERONE ACETATE
     Route: 048
     Dates: start: 20101221, end: 20110705
  37. ANDROCUR (CYPROTERONE ACETATE) [Suspect]
     Active Substance: CYPROTERONE ACETATE
     Route: 048
     Dates: start: 20140818, end: 20170510

REACTIONS (53)
  - Cognitive disorder [Recovered/Resolved with Sequelae]
  - Gait disturbance [Not Recovered/Not Resolved]
  - Fatigue [Unknown]
  - Aphasia [Unknown]
  - Memory impairment [Unknown]
  - Eye haematoma [Unknown]
  - Hemiparesis [Unknown]
  - Disturbance in attention [Recovered/Resolved with Sequelae]
  - Paraesthesia [Recovered/Resolved with Sequelae]
  - Hemiplegia [Unknown]
  - Hemiparaesthesia [Unknown]
  - Weight increased [Not Recovered/Not Resolved]
  - Hypoaesthesia [Unknown]
  - Speech disorder [Recovered/Resolved with Sequelae]
  - Hemiparaesthesia [Unknown]
  - Eye haematoma [Unknown]
  - Facial paralysis [Unknown]
  - Memory impairment [Recovered/Resolved with Sequelae]
  - Asthenia [Recovered/Resolved with Sequelae]
  - Disturbance in attention [Unknown]
  - Nervous system disorder [Unknown]
  - Coordination abnormal [Not Recovered/Not Resolved]
  - Paraesthesia [Recovered/Resolved with Sequelae]
  - Balance disorder [Not Recovered/Not Resolved]
  - Muscular weakness [Not Recovered/Not Resolved]
  - Formication [Recovered/Resolved with Sequelae]
  - Intracranial mass [Unknown]
  - Meningioma [Not Recovered/Not Resolved]
  - Clumsiness [Unknown]
  - Neck pain [Unknown]
  - Hemiplegia [Not Recovered/Not Resolved]
  - Joint range of motion decreased [Recovered/Resolved with Sequelae]
  - Loss of personal independence in daily activities [Unknown]
  - Product dose omission issue [None]
  - Muscular weakness [Not Recovered/Not Resolved]
  - Language disorder [Unknown]
  - Disorientation [Unknown]
  - Dysarthria [Not Recovered/Not Resolved]
  - Balance disorder [Recovered/Resolved with Sequelae]
  - Mobility decreased [Recovered/Resolved with Sequelae]
  - Brain herniation [Unknown]
  - Executive dysfunction [Recovered/Resolved with Sequelae]
  - Fatigue [Recovered/Resolved with Sequelae]
  - Pain [Unknown]
  - Headache [Unknown]
  - Off label use [None]
  - Dyskinesia [Unknown]
  - Diplopia [Not Recovered/Not Resolved]
  - Aphasia [Unknown]
  - Language disorder [Recovered/Resolved with Sequelae]
  - Partial seizures [Unknown]
  - Visual impairment [Unknown]
  - Product use in unapproved indication [None]

NARRATIVE: CASE EVENT DATE: 2017
